FAERS Safety Report 8950450 (Version 1)
Quarter: 2012Q4

REPORT INFORMATION
  Report Type: Spontaneous
  Country: GB (occurrence: None)
  Receive Date: 20121128
  Receipt Date: 20121128
  Transmission Date: 20130627
  Serious: Yes (Hospitalization)
  Sender: FDA-Public Use
  Company Number: 2012-01689

PATIENT
  Age: 78 Year
  Sex: Female

DRUGS (7)
  1. LOSARTAN [Suspect]
     Indication: DRUG USE FOR UNKNOWN INDICATION
     Route: 048
     Dates: start: 20121010, end: 20121029
  2. ATENOLOL [Concomitant]
  3. CIMETIDINE [Concomitant]
  4. GLYCERYL TRINITRATE [Concomitant]
  5. ISOSORBIDE (ISOSORBIDE MONONITRATE) [Concomitant]
  6. LEVOTHYROXINE [Concomitant]
  7. PARACETAMOL [Concomitant]

REACTIONS (2)
  - Renal failure acute [None]
  - Glomerular filtration rate decreased [None]
